FAERS Safety Report 8949626 (Version 1)
Quarter: 2012Q4

REPORT INFORMATION
  Report Type: 
  Country: US (occurrence: US)
  Receive Date: 20121206
  Receipt Date: 20121206
  Transmission Date: 20130627
  Serious: No
  Sender: FDA-Public Use
  Company Number: US-ASTRAZENECA-2004UW05071

PATIENT
  Age: 65 Year
  Sex: Female
  Weight: 54.4 kg

DRUGS (5)
  1. CRESTOR [Suspect]
     Indication: HYPERCHOLESTEROLAEMIA
     Route: 048
     Dates: start: 20040311
  2. NEXIUM [Suspect]
     Route: 048
  3. ASA [Concomitant]
  4. DARVOCET [Concomitant]
  5. XANAX [Concomitant]

REACTIONS (6)
  - Dyspepsia [Unknown]
  - Chest pain [Unknown]
  - Aphagia [Unknown]
  - Pain in extremity [Unknown]
  - Muscular weakness [Unknown]
  - Drug dose omission [Unknown]
